FAERS Safety Report 6480464-2 (Version None)
Quarter: 2009Q4

REPORT INFORMATION
  Report Type: 
  Country: None (occurrence: None)
  Receive Date: 20091203
  Receipt Date: 20091124
  Transmission Date: 20100525
  Serious: Yes (Hospitalization)
  Sender: FDA-Public Use
  Company Number: 8055165

PATIENT
  Age: 67 Year
  Sex: Female
  Weight: 70 kg

DRUGS (9)
  1. CIMZIA [Suspect]
     Indication: CROHN'S DISEASE
     Dosage: 400 MG /M SC
     Route: 058
     Dates: start: 20080815, end: 20091014
  2. CIMZIA [Suspect]
     Indication: CROHN'S DISEASE
     Dosage: 200 MG /M SC
     Route: 058
     Dates: start: 20091014
  3. LIALDA [Concomitant]
  4. LYRICA [Concomitant]
  5. CELEXA [Concomitant]
  6. RESTORIL [Concomitant]
  7. SKELAXIN [Concomitant]
  8. LOMOTIL [Concomitant]
  9. TYLENOL (CAPLET) [Concomitant]

REACTIONS (1)
  - APHTHOUS STOMATITIS [None]
